FAERS Safety Report 6259099-2 (Version None)
Quarter: 2009Q3

REPORT INFORMATION
  Report Type: 
  Country: None (occurrence: None)
  Receive Date: 20090702
  Receipt Date: 20090624
  Transmission Date: 20100115
  Serious: Yes (Death)
  Sender: FDA-Public Use
  Company Number: 20096978

PATIENT
  Age: 87 Year
  Sex: Female

DRUGS (1)
  1. LIORESAL [Suspect]
     Indication: MUSCLE SPASTICITY
     Dosage: 360 MCG, DAILY, INTRATHECAL
     Route: 037

REACTIONS (2)
  - ASTHENIA [None]
  - URINARY TRACT INFECTION [None]
